FAERS Safety Report 9332373 (Version 2)
Quarter: 2013Q3

REPORT INFORMATION
  Report Type: Spontaneous
  Country: FR (occurrence: FR)
  Receive Date: 20130606
  Receipt Date: 20130716
  Transmission Date: 20140515
  Serious: Yes (Other)
  Sender: FDA-Public Use
  Company Number: PHHY2013FR056111

PATIENT
  Age: 56 Year
  Sex: Male

DRUGS (5)
  1. ZOLEDRONATE [Suspect]
     Indication: OSTEOPOROSIS
     Dosage: 48 MG CUMULATIVE DOSE
     Route: 042
  2. PAMIDRONATE [Suspect]
     Indication: OSTEOPOROSIS
     Dosage: 18 MG CUMULATIVE DOSE
  3. FLUINDIONE [Concomitant]
  4. BISOPROLOL [Concomitant]
  5. PREDNISONE [Concomitant]

REACTIONS (1)
  - Osteonecrosis of jaw [Unknown]
